FAERS Safety Report 16140958 (Version 1)
Quarter: 2019Q2

REPORT INFORMATION
  Report Type: Report from Study
  Country: None (occurrence: GR)
  Receive Date: 20190401
  Receipt Date: 20190401
  Transmission Date: 20190711
  Serious: Yes (Hospitalization, Other)
  Sender: FDA-Public Use
  Company Number: GR-ABBVIE-19S-066-2723704-00

PATIENT
  Age: 78 Year
  Sex: Male

DRUGS (4)
  1. SOPA-K [Concomitant]
     Indication: PRODUCT USED FOR UNKNOWN INDICATION
     Route: 048
     Dates: start: 20180918
  2. DUODOPA [Suspect]
     Active Substance: CARBIDOPA\LEVODOPA
     Indication: PARKINSON^S DISEASE
     Dosage: MD: 8.5 ML; CR: 2.5 ML/H ED: 2.9 ML
     Route: 050
     Dates: start: 20160607
  3. MADOPAR [Concomitant]
     Active Substance: BENSERAZIDE HYDROCHLORIDE\LEVODOPA
     Indication: PARKINSON^S DISEASE
     Dosage: 0.75 OF UNKNOWN, EVERY 3 HOURS 5 TIMES PER DAY
     Route: 048
     Dates: start: 20180918
  4. IVOR [Concomitant]
     Active Substance: BEMIPARIN SODIUM
     Indication: PRODUCT USED FOR UNKNOWN INDICATION
     Route: 017
     Dates: start: 20180918

REACTIONS (3)
  - Colon cancer [Not Recovered/Not Resolved]
  - Internal haemorrhage [Not Recovered/Not Resolved]
  - Urinary tract infection [Not Recovered/Not Resolved]

NARRATIVE: CASE EVENT DATE: 20190315
